FAERS Safety Report 4500516-3 (Version None)
Quarter: 2004Q4

REPORT INFORMATION
  Report Type: 
  Country: None (occurrence: None)
  Receive Date: 20041110
  Receipt Date: 20041101
  Transmission Date: 20050328
  Serious: Yes (Hospitalization)
  Sender: FDA-Public Use
  Company Number: 2004S1000084

PATIENT
  Age: 71 Year
  Sex: Male
  Weight: 54.4316 kg

DRUGS (3)
  1. OXANDRIN [Suspect]
     Indication: WEIGHT CONTROL
     Dosage: 10 MG; BID; PO
     Route: 048
     Dates: start: 20040520, end: 20040528
  2. DURAGESIC [Concomitant]
  3. DILANTIN /CAN/ [Concomitant]

REACTIONS (1)
  - PNEUMONIA [None]
